FAERS Safety Report 20727479 (Version 1)
Quarter: 2022Q2

REPORT INFORMATION
  Report Type: Other
  Country: US (occurrence: None)
  Receive Date: 20220419
  Receipt Date: 20220419
  Transmission Date: 20220721
  Serious: No
  Sender: FDA-Public Use
  Company Number: US-ROCHE-2789964

PATIENT
  Age: 60 Year
  Sex: Female

DRUGS (4)
  1. BEVACIZUMAB [Suspect]
     Active Substance: BEVACIZUMAB
     Indication: Glaucoma
     Route: 050
  2. DORZOLAMIDE [Concomitant]
     Active Substance: DORZOLAMIDE
  3. TIMOLOL [Concomitant]
     Active Substance: TIMOLOL
  4. LATANOPROST [Concomitant]
     Active Substance: LATANOPROST

REACTIONS (2)
  - Off label use [Unknown]
  - No adverse event [Unknown]
